APPROVED DRUG PRODUCT: BAYER EXTRA STRENGTH ASPIRIN FOR MIGRAINE PAIN
Active Ingredient: ASPIRIN
Strength: 500MG
Dosage Form/Route: TABLET;ORAL
Application: N021317 | Product #001
Applicant: BAYER HEALTHCARE LLC
Approved: Oct 18, 2001 | RLD: No | RS: No | Type: DISCN